FAERS Safety Report 14502051 (Version 2)
Quarter: 2018Q1

REPORT INFORMATION
  Report Type: Spontaneous
  Country: DK (occurrence: DK)
  Receive Date: 20180208
  Receipt Date: 20180208
  Transmission Date: 20180509
  Serious: Yes (Hospitalization, Other)
  Sender: FDA-Public Use
  Company Number: DK-B.I. PHARMACEUTICALS,INC./RIDGEFIELD-2018-12-000351

PATIENT
  Age: 63 Year
  Sex: Female
  Weight: 74 kg

DRUGS (14)
  1. METOCLOPRAMIDE ORION [Concomitant]
     Indication: NAUSEA
     Dosage: STYRKE: 10 MG. 1 TABLET VED BEHOV, H?JST 2 GANGE DAGLIG
     Route: 048
     Dates: start: 20160322
  2. ANTABUS [Concomitant]
     Active Substance: DISULFIRAM
     Indication: ALCOHOL WITHDRAWAL SYNDROME
     Dosage: STYRKE: 400 MG
     Route: 048
     Dates: start: 20171005
  3. ESCITALOPRAM ACCORD [Concomitant]
     Active Substance: ESCITALOPRAM OXALATE
     Indication: DEPRESSION
     Dosage: STYRKE: 20 MG
     Route: 048
     Dates: start: 20160831
  4. JANUVIA [Concomitant]
     Active Substance: SITAGLIPTIN PHOSPHATE
     Indication: TYPE 2 DIABETES MELLITUS
     Dosage: STYRKE: 100 MG
     Route: 048
     Dates: start: 20160824
  5. CAMPRAL [Concomitant]
     Active Substance: ACAMPROSATE CALCIUM
     Indication: ALCOHOL ABUSE
     Dosage: STYRKE: 333 MG
     Route: 048
     Dates: start: 20171026
  6. VENTOLINE [Concomitant]
     Active Substance: ALBUTEROL
     Indication: BRONCHOSPASM
     Dosage: STRENGTH: 0.2 MG. DOSE: 1 PUFF PER NEED, MAXIMUM 6 TIMES A DAY
     Route: 055
     Dates: start: 20161103
  7. OMEPRAZOL ACTAVIS [Concomitant]
     Active Substance: OMEPRAZOLE
     Indication: GASTROOESOPHAGEAL REFLUX DISEASE
     Dosage: STYRKE: 20 MG
     Route: 048
     Dates: start: 20160216
  8. KODIMAGNYL IKKE-STOPPENDE [Concomitant]
     Indication: PAIN
     Dosage: STRENGTH: 500+9.6 MG. DOSE: 2 TABLETS PER NEED, MAXIMUM 4 TIMES A DAY
     Route: 048
     Dates: start: 20160105
  9. INSUMAN RAPID [Concomitant]
     Active Substance: INSULIN HUMAN
     Indication: TYPE 2 DIABETES MELLITUS
     Dosage: STRENGTH: 100IE/ML. DOSE: AFTER WRITTEN INSTRUCTION
     Route: 058
     Dates: start: 20150730
  10. VIBEDEN [Concomitant]
     Indication: VITAMIN B12 DEFICIENCY
     Dosage: STRENGTH: 1 MG/ML. DOSE: 1 DOSE EVERY 12. WEEK
     Route: 030
     Dates: start: 20150721
  11. EUTHYROX [Concomitant]
     Active Substance: LEVOTHYROXINE SODIUM
     Indication: MYXOEDEMA
     Dosage: STYRKE: 100 MIKROGRAM
     Route: 048
     Dates: start: 20160322
  12. GABAPENTIN ^PCD^ [Concomitant]
     Active Substance: GABAPENTIN
     Indication: PAIN
     Dosage: STYRKE: 300 MG
     Route: 048
     Dates: start: 20171115
  13. FLUTIFORM [Concomitant]
     Active Substance: FLUTICASONE PROPIONATE\FORMOTEROL FUMARATE
     Indication: LUNG DISORDER
     Dosage: STYRKE: 250+10 MIKROGRAM
     Route: 055
     Dates: start: 20161122
  14. JARDIANCE [Suspect]
     Active Substance: EMPAGLIFLOZIN
     Indication: TYPE 2 DIABETES MELLITUS
     Dosage: STYRKE: 10 MG
     Route: 048
     Dates: start: 20170102, end: 20171122

REACTIONS (4)
  - Diarrhoea [Recovered/Resolved]
  - Diabetic ketoacidosis [Recovered/Resolved]
  - Dehydration [Recovered/Resolved]
  - Hyperventilation [Recovered/Resolved]

NARRATIVE: CASE EVENT DATE: 201711
